FAERS Safety Report 10351383 (Version 1)
Quarter: 2014Q3

REPORT INFORMATION
  Report Type: Spontaneous
  Country: US (occurrence: US)
  Receive Date: 20140730
  Receipt Date: 20140730
  Transmission Date: 20150326
  Serious: Yes (Hospitalization, Other)
  Sender: FDA-Public Use
  Company Number: US-BRISTOL-MYERS SQUIBB COMPANY-21230925

PATIENT
  Age: 84 Year
  Sex: Female
  Weight: 56.69 kg

DRUGS (2)
  1. CARVEDILOL. [Concomitant]
     Active Substance: CARVEDILOL
     Indication: BLOOD CHOLESTEROL ABNORMAL
  2. ELIQUIS [Suspect]
     Active Substance: APIXABAN
     Indication: CEREBROVASCULAR ACCIDENT PROPHYLAXIS
     Dates: start: 201402

REACTIONS (7)
  - Dyspnoea [Unknown]
  - Compression fracture [Unknown]
  - Diarrhoea [Unknown]
  - Colitis [Unknown]
  - Muscular weakness [Unknown]
  - Weight decreased [Unknown]
  - Dysgeusia [Unknown]
